FAERS Safety Report 6704286-X (Version None)
Quarter: 2010Q2

REPORT INFORMATION
  Report Type: 
  Country: None (occurrence: None)
  Receive Date: 20100430
  Receipt Date: 20100330
  Transmission Date: 20101027
  Serious: No
  Sender: FDA-Public Use
  Company Number: US-BAYER-201020591NA

PATIENT
  Age: 55 Year
  Sex: Male
  Weight: 63 kg

DRUGS (1)
  1. ULTRAVIST 300 [Suspect]
     Indication: DRUG USE FOR UNKNOWN INDICATION
     Dates: start: 20091201, end: 20091201

REACTIONS (1)
  - SNEEZING [None]
